FAERS Safety Report 20183721 (Version 1)
Quarter: 2021Q4

REPORT INFORMATION
  Report Type: Spontaneous
  Country: US (occurrence: US)
  Receive Date: 20211214
  Receipt Date: 20211214
  Transmission Date: 20220303
  Serious: No
  Sender: FDA-Public Use
  Company Number: US-REGENERON PHARMACEUTICALS, INC.-2020-95313

PATIENT

DRUGS (2)
  1. EYLEA [Suspect]
     Active Substance: AFLIBERCEPT
     Indication: Choroidal neovascularisation
     Dosage: 2MG EVERY 4 WEEKS FOR FIRST 3 INJECTIONS
     Route: 031
     Dates: start: 20201119
  2. EYLEA [Suspect]
     Active Substance: AFLIBERCEPT
     Dosage: 2 MG/0.05 ML, ONCE EVERY 8 WEEKS IN THE RIGHT EYE
     Route: 031
     Dates: start: 20201217, end: 20201217

REACTIONS (1)
  - Off label use [Unknown]
